FAERS Safety Report 8872349 (Version 1)
Quarter: 2012Q4

REPORT INFORMATION
  Report Type: 
  Country: US (occurrence: US)
  Receive Date: 20121029
  Receipt Date: 20121029
  Transmission Date: 20130627
  Serious: No
  Sender: FDA-Public Use
  Company Number: US-B.I. PHARMACEUTICALS,INC./RIDGEFIELD-2012-BP-26385BP

PATIENT
  Sex: Male

DRUGS (4)
  1. SPIRIVA [Suspect]
     Indication: EMPHYSEMA
     Dosage: 18 mcg
     Route: 055
     Dates: start: 20121005
  2. BROVANA [Concomitant]
     Route: 055
     Dates: start: 20121005
  3. PULMOCORT [Concomitant]
     Route: 055
     Dates: start: 2010
  4. BUDESONIDE [Concomitant]
     Route: 055
     Dates: start: 20121005

REACTIONS (2)
  - Nervousness [Not Recovered/Not Resolved]
  - Feeling jittery [Not Recovered/Not Resolved]
